FAERS Safety Report 4862335-8 (Version None)
Quarter: 2005Q4

REPORT INFORMATION
  Report Type: 
  Country: None (occurrence: None)
  Receive Date: 20051221
  Receipt Date: 20051209
  Transmission Date: 20060501
  Serious: Yes (Other)
  Sender: FDA-Public Use
  Company Number: CA-BRISTOL-MYERS SQUIBB COMPANY-13217245

PATIENT
  Age: 48 Year
  Sex: Male

DRUGS (7)
  1. TEQUIN [Suspect]
  2. ALLOPURINOL [Concomitant]
  3. ATIVAN [Concomitant]
     Route: 060
  4. CEFAZOLIN [Concomitant]
  5. FOLIC ACID [Concomitant]
  6. GENTAMICIN [Concomitant]
     Route: 042
  7. VIOXX [Concomitant]

REACTIONS (1)
  - HYPOGLYCAEMIA [None]
